FAERS Safety Report 18583209 (Version 1)
Quarter: 2020Q4

REPORT INFORMATION
  Report Type: Spontaneous
  Country: PK (occurrence: PK)
  Receive Date: 20201206
  Receipt Date: 20201206
  Transmission Date: 20210114
  Serious: Yes (Other)
  Sender: FDA-Public Use
  Company Number: NVSC2020PK312830

PATIENT

DRUGS (1)
  1. IMATINIB. [Suspect]
     Active Substance: IMATINIB MESYLATE
     Indication: PRODUCT USED FOR UNKNOWN INDICATION
     Dosage: UNK
     Route: 048
     Dates: start: 2020, end: 2020

REACTIONS (5)
  - Disease progression [Unknown]
  - Aplastic anaemia [Unknown]
  - Graft versus host disease [Unknown]
  - Keratitis [Unknown]
  - Rash [Unknown]
